FAERS Safety Report 21403578 (Version 2)
Quarter: 2022Q4

REPORT INFORMATION
  Report Type: Report from Study
  Country: FR (occurrence: FR)
  Receive Date: 20221003
  Receipt Date: 20221223
  Transmission Date: 20230112
  Serious: Yes (Hospitalization, Other)
  Sender: FDA-Public Use
  Company Number: FR-UCBSA-2022036173

PATIENT
  Age: 22 Year
  Sex: Female
  Weight: 60 kg

DRUGS (3)
  1. BRIVIACT [Suspect]
     Active Substance: BRIVARACETAM
     Indication: Epilepsy
     Dosage: 50MG IN AM AND 100MG IN PM
     Route: 048
     Dates: start: 20220619, end: 2022
  2. KEPPRA [Suspect]
     Active Substance: LEVETIRACETAM
     Indication: Epilepsy
     Dosage: 1500 MILLIGRAM, 2X/DAY (BID)
     Route: 048
     Dates: start: 20210523
  3. ESLICARBAZEPINE ACETATE [Concomitant]
     Active Substance: ESLICARBAZEPINE ACETATE
     Indication: Epilepsy
     Dosage: 1200 MILLIGRAM, UNK
     Route: 048
     Dates: start: 20201210

REACTIONS (3)
  - Seizure [Recovered/Resolved]
  - Product use issue [Unknown]
  - Behaviour disorder [Unknown]

NARRATIVE: CASE EVENT DATE: 20220601
